FAERS Safety Report 7021627-7 (Version None)
Quarter: 2010Q3

REPORT INFORMATION
  Report Type: 
  Country: None (occurrence: None)
  Receive Date: 20100928
  Receipt Date: 20100913
  Transmission Date: 20110219
  Serious: Yes (Other)
  Sender: FDA-Public Use
  Company Number: A-CH2010-39775

PATIENT
  Age: 10 Year
  Sex: Female
  Weight: 18 kg

DRUGS (2)
  1. TRACLEER [Suspect]
     Indication: PULMONARY ARTERIAL HYPERTENSION
     Dosage: 31.25 MG, QD, ORAL
     Route: 048
     Dates: start: 20100828
  2. CAPOTEN [Concomitant]

REACTIONS (2)
  - ACUTE HEPATIC FAILURE [None]
  - PERICARDIAL EFFUSION [None]
